FAERS Safety Report 7632127-5 (Version None)
Quarter: 2011Q3

REPORT INFORMATION
  Report Type: 
  Country: None (occurrence: None)
  Receive Date: 20110725
  Receipt Date: 20110725
  Transmission Date: 20111222
  Serious: Yes (Life-Threatening, Hospitalization, Other)
  Sender: FDA-Public Use
  Company Number: None

PATIENT
  Age: 78 Year
  Sex: Male
  Weight: 90.7 kg

DRUGS (6)
  1. HYDROXYUREA [Concomitant]
     Route: 048
  2. ISINOPRIL [Concomitant]
     Route: 048
  3. HYDROXYUREA [Concomitant]
     Route: 048
  4. PRADAXA [Suspect]
     Indication: ATRIAL FIBRILLATION
     Dosage: 150MG
     Route: 048
  5. ALLOPURINOL [Concomitant]
     Route: 048
  6. PRADAXA [Concomitant]

REACTIONS (4)
  - MELAENA [None]
  - GASTROINTESTINAL HAEMORRHAGE [None]
  - DYSPNOEA [None]
  - DIZZINESS [None]
